FAERS Safety Report 9980412 (Version 1)
Quarter: 2014Q1

REPORT INFORMATION
  Report Type: Spontaneous
  Country: FR (occurrence: None)
  Receive Date: 20140305
  Receipt Date: 20140305
  Transmission Date: 20141002
  Serious: Yes (Hospitalization)
  Sender: FDA-Public Use
  Company Number: 2014000060

PATIENT
  Age: 93 Year
  Sex: Female

DRUGS (2)
  1. ACEON [Suspect]
     Indication: HYPERTENSION
     Route: 048
     Dates: end: 20131013
  2. LASILIX SPECIAL [Suspect]
     Indication: PRODUCT USED FOR UNKNOWN INDICATION
     Route: 048
     Dates: end: 20131013

REACTIONS (9)
  - Overdose [None]
  - Dehydration [None]
  - Gastrointestinal haemorrhage [None]
  - Renal failure acute [None]
  - Fall [None]
  - Iatrogenic injury [None]
  - Cardiopulmonary failure [None]
  - Ischaemic stroke [None]
  - International normalised ratio increased [None]
